FAERS Safety Report 5078122-4 (Version None)
Quarter: 2006Q3

REPORT INFORMATION
  Report Type: 
  Country: None (occurrence: None)
  Receive Date: 20060811
  Receipt Date: 20060801
  Transmission Date: 20061208
  Serious: Yes (Disabling, Other)
  Sender: FDA-Public Use
  Company Number: HR-ABBOTT-06P-216-0339326-00

PATIENT
  Age: 30 Year
  Sex: Female

DRUGS (3)
  1. CYCLOSPORINE [Suspect]
     Indication: IMMUNOSUPPRESSION
     Dosage: NOT REPORTED
     Dates: start: 19971101
  2. PREDNISONE [Concomitant]
     Indication: IMMUNOSUPPRESSION
     Dates: start: 19971101
  3. AZATHIOPRINE SODIUM [Concomitant]
     Indication: IMMUNOSUPPRESSION
     Dates: start: 19971101

REACTIONS (2)
  - CHOLELITHIASIS [None]
  - RETINAL VEIN THROMBOSIS [None]
